FAERS Safety Report 19934741 (Version 1)
Quarter: 2021Q4

REPORT INFORMATION
  Report Type: Spontaneous
  Country: FR (occurrence: FR)
  Receive Date: 20211009
  Receipt Date: 20211009
  Transmission Date: 20220303
  Serious: Yes (Life-Threatening, Other)
  Sender: FDA-Public Use
  Company Number: None

PATIENT
  Age: 74 Year
  Sex: Male

DRUGS (2)
  1. OPDIVO [Suspect]
     Active Substance: NIVOLUMAB
     Indication: Breast cancer metastatic
     Dosage: 1 CURE
     Route: 041
     Dates: start: 20210813, end: 20210813
  2. YERVOY [Suspect]
     Active Substance: IPILIMUMAB
     Indication: Breast cancer metastatic
     Dosage: 1 CURE
     Route: 041
     Dates: start: 20210813, end: 20210813

REACTIONS (3)
  - Polyneuropathy [Not Recovered/Not Resolved]
  - Myocarditis [Not Recovered/Not Resolved]
  - Intentional product use issue [Unknown]

NARRATIVE: CASE EVENT DATE: 20210902
